FAERS Safety Report 4656259-9 (Version None)
Quarter: 2005Q2

REPORT INFORMATION
  Report Type: 
  Country: None (occurrence: None)
  Receive Date: 20050509
  Receipt Date: 20050316
  Transmission Date: 20051028
  Serious: No
  Sender: FDA-Public Use
  Company Number: US-GLAXOSMITHKLINE-A0550087A

PATIENT
  Sex: Female

DRUGS (5)
  1. AVANDAMET [Suspect]
     Dosage: 1MG TWICE PER DAY
     Route: 048
  2. PAXIL [Concomitant]
  3. GLIPIZIDE [Concomitant]
  4. KLONOPIN [Concomitant]
  5. TRAZODONE [Concomitant]

REACTIONS (1)
  - BLOOD GLUCOSE INCREASED [None]
